FAERS Safety Report 5816819-6 (Version None)
Quarter: 2008Q3

REPORT INFORMATION
  Report Type: 
  Country: None (occurrence: None)
  Receive Date: 20080721
  Receipt Date: 20080707
  Transmission Date: 20090109
  Serious: Yes (Hospitalization)
  Sender: FDA-Public Use
  Company Number: JP-GENENTECH-252874

PATIENT
  Sex: Female

DRUGS (5)
  1. BEVACIZUMAB [Suspect]
     Indication: RECTAL CANCER
     Dosage: 5 MG/KG, QD
     Route: 042
     Dates: start: 20070911
  2. OXALIPLATIN [Suspect]
     Indication: RECTAL CANCER
     Dosage: 85 MG/M2, QD
     Route: 042
     Dates: start: 20070911
  3. FLUOROURACIL [Suspect]
     Indication: RECTAL CANCER
     Dosage: 400 MG/M2, QD
     Route: 042
     Dates: start: 20070105
  4. ISOVORIN [Suspect]
     Indication: RECTAL CANCER
     Dosage: 200 MG, QD
     Route: 042
     Dates: start: 20070911
  5. IRINOTECAN HCL [Concomitant]
     Indication: DRUG USE FOR UNKNOWN INDICATION
     Dosage: UNK
     Dates: start: 20080307

REACTIONS (1)
  - WHITE BLOOD CELL COUNT DECREASED [None]
